FAERS Safety Report 16150251 (Version 1)
Quarter: 2019Q2

REPORT INFORMATION
  Report Type: Spontaneous
  Country: US (occurrence: US)
  Receive Date: 20190402
  Receipt Date: 20190402
  Transmission Date: 20190711
  Serious: No
  Sender: FDA-Public Use
  Company Number: None

PATIENT
  Sex: Male

DRUGS (1)
  1. XTAMPZA [Suspect]
     Active Substance: OXYCODONE

REACTIONS (3)
  - Nausea [None]
  - Headache [None]
  - Therapeutic product effect incomplete [None]
